FAERS Safety Report 8504531-4 (Version None)
Quarter: 2012Q3

REPORT INFORMATION
  Report Type: 
  Country: None (occurrence: None)
  Receive Date: 20120711
  Receipt Date: 20120701
  Transmission Date: 20120928
  Serious: Yes (Other)
  Sender: FDA-Public Use
  Company Number: US-ROCHE-1084818

PATIENT

DRUGS (2)
  1. CYCLOPHOSPHAMIDE [Suspect]
     Indication: BREAST CANCER METASTATIC
     Dosage: ON DAYS 1-14
     Route: 048
  2. XELODA [Suspect]
     Indication: BREAST CANCER METASTATIC
     Dosage: BEGINNING ON DAY 8 AND CONTINUING TO DAY 21 (TOTAL OF 14 DAYS)
     Route: 048

REACTIONS (23)
  - DIARRHOEA [None]
  - DYSPNOEA [None]
  - LEUKOPENIA [None]
  - BLOOD ANTIDIURETIC HORMONE ABNORMAL [None]
  - HYPONATRAEMIA [None]
  - ALANINE AMINOTRANSFERASE ABNORMAL [None]
  - FATIGUE [None]
  - HAEMOGLOBIN ABNORMAL [None]
  - WEIGHT DECREASED [None]
  - FEBRILE NEUTROPENIA [None]
  - HYPOKALAEMIA [None]
  - NEUTROPENIA [None]
  - PRURITUS [None]
  - DEPRESSION [None]
  - BLOOD ALKALINE PHOSPHATASE ABNORMAL [None]
  - PALMAR-PLANTAR ERYTHRODYSAESTHESIA SYNDROME [None]
  - NAUSEA [None]
  - THROMBOCYTOPENIA [None]
  - THROMBOSIS [None]
  - EMBOLISM [None]
  - DEHYDRATION [None]
  - LYMPHOPENIA [None]
  - RASH [None]
